FAERS Safety Report 7427341-8 (Version None)
Quarter: 2011Q2

REPORT INFORMATION
  Report Type: 
  Country: None (occurrence: None)
  Receive Date: 20110420
  Receipt Date: 20110415
  Transmission Date: 20111010
  Serious: Yes (Hospitalization)
  Sender: FDA-Public Use
  Company Number: PHHO2009DE16233

PATIENT
  Sex: Male
  Weight: 69.7 kg

DRUGS (4)
  1. SANDIMMUNE [Concomitant]
     Indication: RENAL TRANSPLANT
  2. MYFORTIC [Concomitant]
     Indication: RENAL TRANSPLANT
  3. EVEROLIMUS [Suspect]
     Indication: RENAL TRANSPLANT
     Dosage: 0.75 MG, BID
     Route: 048
  4. URBASON [Concomitant]
     Indication: RENAL TRANSPLANT

REACTIONS (1)
  - COMPLICATIONS OF TRANSPLANTED KIDNEY [None]
